FAERS Safety Report 9926764 (Version 1)
Quarter: 2014Q1

REPORT INFORMATION
  Report Type: Spontaneous
  Country: US (occurrence: US)
  Receive Date: 20140226
  Receipt Date: 20140226
  Transmission Date: 20141002
  Serious: No
  Sender: FDA-Public Use
  Company Number: US-AMGEN-USASP2013078220

PATIENT
  Age: 64 Year
  Sex: Female
  Weight: 67.57 kg

DRUGS (8)
  1. ENBREL [Suspect]
     Indication: PSORIATIC ARTHROPATHY
     Dosage: 50 MG, QWK
     Route: 058
  2. VITAMIN D3 [Concomitant]
     Dosage: 10000 IU, UNK
  3. ALPRAZOLAM [Concomitant]
     Dosage: 0.25 MG, UNK
  4. ATORVASTATIN [Concomitant]
     Dosage: 10 MG, UNK
  5. HYDROCHLOROTH [Concomitant]
     Dosage: 25 MG, UNK
  6. POTASSIUM CHLORIDE [Concomitant]
     Dosage: 10 MEQ, UNK
  7. FOLIC ACID [Concomitant]
     Dosage: UNK
  8. COENZYME Q10 [Concomitant]
     Dosage: 100 MG, UNK

REACTIONS (2)
  - Vitamin D decreased [Unknown]
  - Urinary tract infection [Unknown]
